FAERS Safety Report 6781943-0 (Version None)
Quarter: 2010Q2

REPORT INFORMATION
  Report Type: 
  Country: None (occurrence: None)
  Receive Date: 20100621
  Receipt Date: 20100610
  Transmission Date: 20101027
  Serious: Yes (Hospitalization, Other)
  Sender: FDA-Public Use
  Company Number: US-ELI_LILLY_AND_COMPANY-US201006004267

PATIENT
  Age: 73 Year
  Sex: Female
  Weight: 67.12 kg

DRUGS (2)
  1. EFFIENT [Suspect]
     Indication: PERCUTANEOUS CORONARY INTERVENTION
     Dosage: 10 MG, DAILY (1/D)
     Dates: start: 20100301
  2. ASPIRIN [Concomitant]

REACTIONS (9)
  - ASTHENIA [None]
  - COUGH [None]
  - DIZZINESS [None]
  - DYSPNOEA [None]
  - EPISTAXIS [None]
  - GAIT DISTURBANCE [None]
  - HEART RATE IRREGULAR [None]
  - LETHARGY [None]
  - RHABDOMYOLYSIS [None]
